FAERS Safety Report 5182514-2 (Version None)
Quarter: 2006Q4

REPORT INFORMATION
  Report Type: 
  Country: None (occurrence: None)
  Receive Date: 20061220
  Receipt Date: 20061011
  Transmission Date: 20070319
  Serious: No
  Sender: FDA-Public Use
  Company Number: US-GLAXOSMITHKLINE-A0623170A

PATIENT
  Age: 42 Year
  Sex: Male

DRUGS (3)
  1. COMMIT [Suspect]
  2. BAKING SODA [Concomitant]
  3. PEROXIDE [Concomitant]

REACTIONS (5)
  - CAUSTIC INJURY [None]
  - GINGIVAL BLEEDING [None]
  - GINGIVAL DISCOLOURATION [None]
  - GINGIVAL DISORDER [None]
  - GINGIVITIS [None]
